FAERS Safety Report 7865322-0 (Version None)
Quarter: 2011Q4

REPORT INFORMATION
  Report Type: 
  Country: None (occurrence: None)
  Receive Date: 20111028
  Receipt Date: 20101122
  Transmission Date: 20120403
  Serious: Yes (Hospitalization)
  Sender: FDA-Public Use
  Company Number: US-GLAXOSMITHKLINE-A0894534A

PATIENT
  Age: 61 Year
  Sex: Female

DRUGS (4)
  1. BENAZEPRIL HYDROCHLORIDE [Concomitant]
  2. ADVAIR DISKUS 100/50 [Suspect]
     Indication: ASTHMA
     Dosage: 1PUFF TWICE PER DAY
     Route: 055
     Dates: start: 20050101
  3. COMBIVENT [Concomitant]
  4. ALLERGY SINUS MEDICATION [Concomitant]

REACTIONS (5)
  - HEART RATE INCREASED [None]
  - DRUG INEFFECTIVE [None]
  - WHEEZING [None]
  - BLOOD PRESSURE INCREASED [None]
  - DYSPNOEA [None]
